FAERS Safety Report 25289701 (Version 2)
Quarter: 2025Q2

REPORT INFORMATION
  Report Type: Spontaneous
  Country: US (occurrence: US)
  Receive Date: 20250509
  Receipt Date: 20250609
  Transmission Date: 20250717
  Serious: No
  Sender: PFIZER
  Company Number: US-PFIZER INC-202500093328

PATIENT
  Age: 9 Year
  Sex: Male
  Weight: 24.6 kg

DRUGS (1)
  1. SOMATROPIN [Suspect]
     Active Substance: SOMATROPIN
     Indication: Short stature
     Dosage: 0.8 MG, DAILY AT BEDTIME
     Route: 058
     Dates: start: 20250428

REACTIONS (4)
  - Mean platelet volume increased [Unknown]
  - Poikilocytosis [Unknown]
  - Carbon dioxide increased [Unknown]
  - Vitamin D deficiency [Unknown]
